FAERS Safety Report 6552897-7 (Version None)
Quarter: 2010Q1

REPORT INFORMATION
  Report Type: 
  Country: None (occurrence: None)
  Receive Date: 20100122
  Receipt Date: 20100114
  Transmission Date: 20100710
  Serious: Yes (Death, Life-Threatening)
  Sender: FDA-Public Use
  Company Number: 2010SP003643

PATIENT
  Age: 71 Year
  Sex: Male

DRUGS (2)
  1. INTEGRILIN [Suspect]
     Indication: ANTICOAGULANT THERAPY
     Dosage: 21 ML;
     Dates: start: 20100101, end: 20100101
  2. HEPARIN [Suspect]
     Indication: ANTICOAGULANT THERAPY
     Dosage: 7500 IU;
     Route: 015
     Dates: start: 20100101, end: 20100101

REACTIONS (3)
  - CARDIOGENIC SHOCK [None]
  - CORONARY ARTERY OCCLUSION [None]
  - MULTI-ORGAN FAILURE [None]
